FAERS Safety Report 15767337 (Version 1)
Quarter: 2018Q4

REPORT INFORMATION
  Report Type: Spontaneous
  Country: US (occurrence: US)
  Receive Date: 20181227
  Receipt Date: 20181227
  Transmission Date: 20190205
  Serious: No
  Sender: FDA-Public Use
  Company Number: US-BAYER-2018-239215

PATIENT
  Age: 12 Year
  Sex: Male
  Weight: 33 kg

DRUGS (1)
  1. MIRALAX [Suspect]
     Active Substance: POLYETHYLENE GLYCOL 3350
     Indication: ABDOMINAL PAIN
     Dosage: 3 DF
     Route: 048
     Dates: start: 20181216

REACTIONS (5)
  - Off label use [Unknown]
  - Diarrhoea [Not Recovered/Not Resolved]
  - Vomiting [Recovered/Resolved]
  - Drug effective for unapproved indication [Unknown]
  - Incorrect dose administered [Unknown]

NARRATIVE: CASE EVENT DATE: 20181216
